FAERS Safety Report 18675620 (Version 4)
Quarter: 2021Q1

REPORT INFORMATION
  Report Type: Report from Study
  Country: US (occurrence: US)
  Receive Date: 20201229
  Receipt Date: 20210313
  Transmission Date: 20210419
  Serious: Yes (Other)
  Sender: FDA-Public Use
  Company Number: NVSC2020US337297

PATIENT
  Sex: Female

DRUGS (2)
  1. KISQALI [Suspect]
     Active Substance: RIBOCICLIB
     Indication: PRODUCT USED FOR UNKNOWN INDICATION
     Dosage: UNK
     Route: 048
  2. KISQALI [Suspect]
     Active Substance: RIBOCICLIB
     Route: 048

REACTIONS (17)
  - Pneumonia [Unknown]
  - Blister [Unknown]
  - Weight decreased [Unknown]
  - Nausea [Unknown]
  - Blister infected [Unknown]
  - Blood viscosity decreased [Unknown]
  - Product supply issue [Unknown]
  - Diabetes mellitus [Unknown]
  - Secretion discharge [Unknown]
  - Constipation [Unknown]
  - Malaise [Unknown]
  - Haemorrhage [Unknown]
  - Food aversion [Unknown]
  - White blood cell count decreased [Unknown]
  - Vomiting [Unknown]
  - Nasal dryness [Unknown]
  - Epistaxis [Unknown]
